FAERS Safety Report 8486499-2 (Version None)
Quarter: 2012Q3

REPORT INFORMATION
  Report Type: 
  Country: None (occurrence: None)
  Receive Date: 20120703
  Receipt Date: 20120627
  Transmission Date: 20120928
  Serious: Yes (Hospitalization)
  Sender: FDA-Public Use
  Company Number: US-JNJFOC-20120700233

PATIENT
  Sex: Male
  Weight: 36.3 kg

DRUGS (4)
  1. REMICADE [Suspect]
     Indication: INFLAMMATORY BOWEL DISEASE
     Route: 042
     Dates: start: 20080221
  2. REMICADE [Suspect]
     Route: 042
     Dates: start: 20120502
  3. REMICADE [Suspect]
     Route: 042
     Dates: start: 20120620
  4. MESALAMINE [Concomitant]
     Route: 048

REACTIONS (2)
  - PELVIC ABSCESS [None]
  - ENTEROVESICAL FISTULA [None]
